FAERS Safety Report 7344876-7 (Version None)
Quarter: 2011Q1

REPORT INFORMATION
  Report Type: 
  Country: None (occurrence: None)
  Receive Date: 20110308
  Receipt Date: 20110308
  Transmission Date: 20110831
  Serious: Yes (Other)
  Sender: FDA-Public Use
  Company Number: None

PATIENT
  Sex: Female
  Weight: 77.3 kg

DRUGS (6)
  1. FORTEO [Suspect]
     Indication: OSTEOPOROSIS
     Dosage: 20 MCG DAILY S/C (057)
     Route: 058
     Dates: start: 20101114, end: 20110214
  2. FISH OIL [Concomitant]
  3. VITAMIN D [Concomitant]
  4. M.V.I. [Concomitant]
  5. CALCIUM [Concomitant]
  6. FIBER PILL [Concomitant]

REACTIONS (5)
  - DRUG INEFFECTIVE [None]
  - HEADACHE [None]
  - DIZZINESS [None]
  - PHOTOPHOBIA [None]
  - MIDDLE INSOMNIA [None]
